FAERS Safety Report 9120970 (Version 1)
Quarter: 2013Q1

REPORT INFORMATION
  Report Type: Spontaneous
  Country: US (occurrence: US)
  Receive Date: 20130226
  Receipt Date: 20130226
  Transmission Date: 20140127
  Serious: Yes (Other)
  Sender: FDA-Public Use
  Company Number: US-JNJFOC-20130213488

PATIENT
  Age: 80 Year
  Sex: Male
  Weight: 90.72 kg

DRUGS (2)
  1. TYLENOL ARTHRITIS PAIN ER [Suspect]
     Route: 048
  2. TYLENOL ARTHRITIS PAIN ER [Suspect]
     Indication: ARTHRALGIA
     Route: 048
     Dates: start: 20130213

REACTIONS (3)
  - Blood pressure increased [Not Recovered/Not Resolved]
  - Expired drug administered [Unknown]
  - Product label issue [Unknown]
